FAERS Safety Report 25786192 (Version 1)
Quarter: 2025Q3

REPORT INFORMATION
  Report Type: Report from Study
  Country: US (occurrence: US)
  Receive Date: 20250910
  Receipt Date: 20250910
  Transmission Date: 20251020
  Serious: No
  Sender: SUNOVION
  Company Number: US-SUMITOMO PHARMA SWITZERLAND GMBH-2025SPA011375

PATIENT
  Age: 67 Year
  Sex: Male

DRUGS (13)
  1. ORGOVYX [Suspect]
     Active Substance: RELUGOLIX
     Indication: Prostate cancer
     Route: 048
  2. ORGOVYX [Suspect]
     Active Substance: RELUGOLIX
     Route: 048
  3. MINERALS\VITAMINS [Concomitant]
     Active Substance: MINERALS\VITAMINS
  4. GLUCOSAMINE [Concomitant]
     Active Substance: GLUCOSAMINE
  5. OZEMPIC [Concomitant]
     Active Substance: SEMAGLUTIDE
  6. Allergy Relief [Concomitant]
  7. REPATHA [Concomitant]
     Active Substance: EVOLOCUMAB
  8. SINGULAIR [Concomitant]
     Active Substance: MONTELUKAST SODIUM
  9. CALCIUM CARBONATE\VITAMIN D [Concomitant]
     Active Substance: CALCIUM CARBONATE\VITAMIN D
  10. ASPIRIN [Concomitant]
     Active Substance: ASPIRIN
  11. TAMSULOSIN HYDROCHLORIDE [Concomitant]
     Active Substance: TAMSULOSIN HYDROCHLORIDE
  12. VALSARTAN [Concomitant]
     Active Substance: VALSARTAN
  13. HYDROCHLOROTHIAZIDE [Concomitant]
     Active Substance: HYDROCHLOROTHIAZIDE

REACTIONS (2)
  - Fatigue [Unknown]
  - Hot flush [Unknown]
